FAERS Safety Report 10605756 (Version 2)
Quarter: 2014Q4

REPORT INFORMATION
  Report Type: Report from Study
  Country: KR (occurrence: KR)
  Receive Date: 20141125
  Receipt Date: 20141125
  Transmission Date: 20150529
  Serious: Yes (Death, Hospitalization, Other)
  Sender: FDA-Public Use
  Company Number: KR-ROCHE-1429853

PATIENT
  Sex: Female

DRUGS (19)
  1. TOCILIZUMAB [Suspect]
     Active Substance: TOCILIZUMAB
     Indication: RHEUMATOID ARTHRITIS
     Dosage: MOST RECENT DOSE ON 07/APR/2014
     Route: 042
     Dates: start: 20140203
  2. METHOTREXATE [Concomitant]
     Active Substance: METHOTREXATE
     Indication: RHEUMATOID ARTHRITIS
     Route: 065
     Dates: start: 20130102
  3. ALBIS [Concomitant]
     Active Substance: BISMUTH SUBCITRATE\RANITIDINE HYDROCHLORIDE\SUCRALFATE
     Dosage: UNCERTAINTY
     Route: 065
     Dates: start: 20140203, end: 20140209
  4. DEXAMETHASONE. [Concomitant]
     Active Substance: DEXAMETHASONE
     Route: 065
     Dates: start: 20140407, end: 20140407
  5. PREGABALIN. [Concomitant]
     Active Substance: PREGABALIN
     Route: 065
     Dates: start: 20131001, end: 20140427
  6. GABAPENTIN. [Concomitant]
     Active Substance: GABAPENTIN
     Route: 065
     Dates: start: 20140203, end: 20140209
  7. TIZANIDINE HCL [Concomitant]
     Active Substance: TIZANIDINE HYDROCHLORIDE
     Route: 065
     Dates: start: 20140203, end: 20140209
  8. ISONIAZID. [Concomitant]
     Active Substance: ISONIAZID
     Route: 065
     Dates: start: 20140127, end: 20140427
  9. METHOTREXATE [Concomitant]
     Active Substance: METHOTREXATE
     Route: 065
     Dates: start: 20140203
  10. AMARYL M [Concomitant]
     Active Substance: GLIMEPIRIDE\METFORMIN
     Dosage: 2/1000MG
     Route: 065
     Dates: start: 20120710, end: 20140427
  11. LIMAPROST [Concomitant]
     Active Substance: LIMAPROST
     Route: 065
     Dates: start: 20140203, end: 20140209
  12. FOLIC ACID. [Concomitant]
     Active Substance: FOLIC ACID
     Route: 065
     Dates: start: 20090615, end: 20140427
  13. STILLEN [Concomitant]
     Route: 065
     Dates: start: 20131001, end: 20140427
  14. PHENIRAMINE [Concomitant]
     Active Substance: PHENIRAMINE
     Route: 065
     Dates: start: 20140407, end: 20140407
  15. RITUXIMAB [Concomitant]
     Active Substance: RITUXIMAB
     Indication: RHEUMATOID ARTHRITIS
     Route: 065
     Dates: start: 20130912, end: 20130926
  16. CELECOXIB. [Concomitant]
     Active Substance: CELECOXIB
     Indication: RHEUMATOID ARTHRITIS
     Route: 065
     Dates: start: 20111116, end: 20140427
  17. PANTOLOC [Concomitant]
     Active Substance: PANTOPRAZOLE SODIUM
     Route: 065
     Dates: start: 20131001, end: 20140427
  18. METHOTREXATE [Concomitant]
     Active Substance: METHOTREXATE
     Route: 065
     Dates: start: 20140407
  19. SOLONDO [Concomitant]
     Active Substance: PREDNISOLONE
     Indication: RHEUMATOID ARTHRITIS
     Route: 065
     Dates: start: 20140127, end: 20140427

REACTIONS (7)
  - Pubis fracture [Unknown]
  - Rheumatoid arthritis [Recovering/Resolving]
  - Pneumonia [Fatal]
  - Arthritis bacterial [Unknown]
  - Abscess [Recovering/Resolving]
  - Pulmonary embolism [Unknown]
  - Sepsis [Recovering/Resolving]

NARRATIVE: CASE EVENT DATE: 20140429
